FAERS Safety Report 4783730-1 (Version None)
Quarter: 2005Q3

REPORT INFORMATION
  Report Type: 
  Country: None (occurrence: None)
  Receive Date: 20050928
  Receipt Date: 20050915
  Transmission Date: 20060218
  Serious: Yes (Death, Hospitalization)
  Sender: FDA-Public Use
  Company Number: 2005093366

PATIENT
  Age: 50 Year
  Sex: Female

DRUGS (5)
  1. ADRIAMYCIN PFS [Suspect]
     Indication: LYMPHOMA
     Dosage: 70 MG, INTRAVENOUS
     Route: 042
     Dates: start: 20041201, end: 20050215
  2. PREDNISOLONE [Suspect]
     Indication: NON-HODGKIN'S LYMPHOMA
     Dosage: 100 MG ORAL
     Route: 048
     Dates: start: 20041201, end: 20050219
  3. RITUXAN [Suspect]
     Indication: LYMPHOMA
     Dosage: 530 MG INTRAVENOUS
     Route: 042
     Dates: start: 20041201, end: 20051215
  4. ONCOVIN [Concomitant]
  5. CYCLOPHOSPHAMIDE [Concomitant]

REACTIONS (4)
  - CONDITION AGGRAVATED [None]
  - HEPATIC ENCEPHALOPATHY [None]
  - HEPATIC FAILURE [None]
  - HEPATITIS FULMINANT [None]
